FAERS Safety Report 21010961 (Version 4)
Quarter: 2022Q3

REPORT INFORMATION
  Report Type: Report from Study
  Country: CA (occurrence: CA)
  Receive Date: 20220627
  Receipt Date: 20220804
  Transmission Date: 20221027
  Serious: Yes (Hospitalization, Other)
  Sender: FDA-Public Use
  Company Number: CA-TAKEDA-2022TUS030919

PATIENT
  Age: 64 Year
  Sex: Female

DRUGS (1)
  1. VEDOLIZUMAB [Suspect]
     Active Substance: VEDOLIZUMAB
     Indication: Colitis ulcerative
     Dosage: 300 MILLIGRAM
     Route: 042
     Dates: start: 20210331

REACTIONS (8)
  - Hip arthroplasty [Unknown]
  - Post procedural haematoma [Unknown]
  - Procedural haemorrhage [Unknown]
  - Postoperative wound infection [Unknown]
  - Pseudomonas infection [Unknown]
  - Abdominal discomfort [Unknown]
  - Staphylococcal infection [Unknown]
  - Faeces discoloured [Unknown]

NARRATIVE: CASE EVENT DATE: 20220530
